FAERS Safety Report 9093700 (Version 1)
Quarter: 2013Q1

REPORT INFORMATION
  Report Type: Report from Study
  Country: US (occurrence: US)
  Receive Date: 20130131
  Receipt Date: 20130131
  Transmission Date: 20140127
  Serious: No
  Sender: FDA-Public Use
  Company Number: US-ABBOTT-12P-163-1004243-00

PATIENT
  Age: 55 Year
  Sex: Female

DRUGS (7)
  1. HUMIRA [Suspect]
     Indication: COLITIS ULCERATIVE
     Dates: start: 20120802
  2. COLAZAL [Concomitant]
     Indication: COLITIS
  3. PREDNISONE [Concomitant]
     Indication: COLITIS
  4. TENORETIC [Concomitant]
     Indication: BLOOD PRESSURE
  5. GLIPIZIDE [Concomitant]
     Indication: BLOOD GLUCOSE INCREASED
  6. KLOR-CON [Concomitant]
     Indication: PRODUCT USED FOR UNKNOWN INDICATION
  7. CETIRIZINE HYDROCHLORIDE [Concomitant]
     Indication: HYPERSENSITIVITY

REACTIONS (1)
  - Dry skin [Not Recovered/Not Resolved]
